FAERS Safety Report 9282484 (Version 1)
Quarter: 2013Q2

REPORT INFORMATION
  Report Type: Spontaneous
  Country: US (occurrence: US)
  Receive Date: 20130510
  Receipt Date: 20130510
  Transmission Date: 20140414
  Serious: Yes (Death)
  Sender: FDA-Public Use
  Company Number: US-PFIZER INC-2013143754

PATIENT
  Age: 42 Year
  Sex: Female

DRUGS (1)
  1. CAMPTOSAR [Suspect]
     Indication: PANCREATIC CARCINOMA
     Dosage: 280 MG, UNK
     Dates: start: 20130220

REACTIONS (2)
  - Disease progression [Fatal]
  - Pancreatic carcinoma [Fatal]
